FAERS Safety Report 16987838 (Version 2)
Quarter: 2019Q4

REPORT INFORMATION
  Report Type: Spontaneous
  Country: FR (occurrence: FR)
  Receive Date: 20191104
  Receipt Date: 20191118
  Transmission Date: 20200122
  Serious: Yes (Hospitalization)
  Sender: FDA-Public Use
  Company Number: FR-SERB S.A.S.-2076377

PATIENT
  Age: 43 Year
  Sex: Female

DRUGS (3)
  1. CYANOKIT [Suspect]
     Active Substance: HYDROXOCOBALAMIN
     Indication: POISONING
     Route: 041
     Dates: start: 20190706, end: 20190706
  2. RIVOTRIL 1 MG/4 ML SOLUTION ? DILUER INJECTABLES EN AMPOULES (CLONAZEP [Concomitant]
     Route: 042
     Dates: start: 20190706
  3. SODIUM BICARBONATE. [Concomitant]
     Active Substance: SODIUM BICARBONATE

REACTIONS (5)
  - Urticaria [Recovered/Resolved]
  - Dyspnoea [Recovered/Resolved]
  - Oedema [Recovered/Resolved]
  - Product use issue [Recovered/Resolved]
  - Bronchospasm [Recovered/Resolved]

NARRATIVE: CASE EVENT DATE: 20190706
